FAERS Safety Report 11197022 (Version 2)
Quarter: 2015Q4

REPORT INFORMATION
  Report Type: Spontaneous
  Country: DK (occurrence: DK)
  Receive Date: 20150617
  Receipt Date: 20151224
  Transmission Date: 20160304
  Serious: Yes (Hospitalization)
  Sender: FDA-Public Use
  Company Number: DK-JNJFOC-20150610219

PATIENT
  Age: 59 Year
  Sex: Female

DRUGS (2)
  1. REMICADE [Suspect]
     Active Substance: INFLIXIMAB
     Indication: RHEUMATOID ARTHRITIS
     Dosage: 150 (UNITS UNSPECIFIED)??RECEIVED APPROXIMATELY 100 INFUSIONS
     Route: 042
     Dates: start: 2001, end: 201504
  2. METHOTREXATE [Concomitant]
     Active Substance: METHOTREXATE
     Indication: RHEUMATOID ARTHRITIS
     Route: 065
     Dates: start: 2000

REACTIONS (1)
  - Hairy cell leukaemia [Not Recovered/Not Resolved]

NARRATIVE: CASE EVENT DATE: 20150512
